FAERS Safety Report 10712272 (Version 1)
Quarter: 2015Q1

REPORT INFORMATION
  Report Type: Spontaneous
  Country: US (occurrence: US)
  Receive Date: 20150115
  Receipt Date: 20150115
  Transmission Date: 20150721
  Serious: Yes (Death)
  Sender: FDA-Public Use
  Company Number: US-ASTRAZENECA-2015SE01743

PATIENT
  Age: 42 Year
  Sex: Female

DRUGS (10)
  1. DEXTROMETHORPHAN [Suspect]
     Active Substance: DEXTROMETHORPHAN
  2. DIPHENHYDRAMINE [Suspect]
     Active Substance: DIPHENHYDRAMINE
  3. QUETIAPINE [Suspect]
     Active Substance: QUETIAPINE
     Route: 048
  4. ACETAMINOPHEN. [Suspect]
     Active Substance: ACETAMINOPHEN
  5. ISOPROPANOL [Suspect]
     Active Substance: ISOPROPANOLAMINE
  6. FENTANYL. [Suspect]
     Active Substance: FENTANYL
  7. DOXEPIN [Suspect]
     Active Substance: DOXEPIN
  8. DOXYLAMINE [Suspect]
     Active Substance: DOXYLAMINE
  9. BUSPIRONE [Suspect]
     Active Substance: BUSPIRONE HYDROCHLORIDE
  10. CITALOPRAM [Suspect]
     Active Substance: CITALOPRAM HYDROBROMIDE

REACTIONS (2)
  - Drug abuse [Fatal]
  - Toxicity to various agents [Fatal]
